FAERS Safety Report 25048191 (Version 2)
Quarter: 2025Q3

REPORT INFORMATION
  Report Type: Spontaneous
  Country: US (occurrence: US)
  Receive Date: 20250306
  Receipt Date: 20250816
  Transmission Date: 20251020
  Serious: No
  Sender: ALEXION PHARMACEUTICALS
  Company Number: US-AstraZeneca-CH-00821283A

PATIENT
  Age: 80 Year
  Sex: Female

DRUGS (3)
  1. FASENRA [Suspect]
     Active Substance: BENRALIZUMAB
     Indication: Hypersensitivity
     Route: 065
  2. FASENRA [Suspect]
     Active Substance: BENRALIZUMAB
     Indication: Asthma
  3. FASENRA [Suspect]
     Active Substance: BENRALIZUMAB
     Indication: Chronic eosinophilic rhinosinusitis

REACTIONS (3)
  - Wrong technique in product usage process [Unknown]
  - Injection site nodule [Unknown]
  - Off label use [Unknown]

NARRATIVE: CASE EVENT DATE: 20250101
